FAERS Safety Report 6667548-0 (Version None)
Quarter: 2010Q2

REPORT INFORMATION
  Report Type: 
  Country: None (occurrence: None)
  Receive Date: 20100405
  Receipt Date: 20100323
  Transmission Date: 20101027
  Serious: Yes (Hospitalization, Other)
  Sender: FDA-Public Use
  Company Number: US-ELI_LILLY_AND_COMPANY-US201003006684

PATIENT
  Sex: Female

DRUGS (7)
  1. CYMBALTA [Suspect]
     Indication: DEPRESSION
     Dosage: 60 MG, DAILY (1/D)
  2. WELLBUTRIN [Concomitant]
     Dosage: 1 D/F, UNK
  3. LYRICA [Concomitant]
     Dosage: 75 MG, 2/D
  4. BUPROPION HCL [Concomitant]
     Dosage: 300 MG, DAILY (1/D)
  5. TRAMADOL HCL [Concomitant]
     Dosage: 1 D/F, AS NEEDED
  6. MECLIZINE [Concomitant]
     Dosage: 1 D/F, AS NEEDED
  7. VITAMIN B-12 [Concomitant]
     Dosage: 1 D/F, MONTHLY (1/M)

REACTIONS (12)
  - ADVERSE EVENT [None]
  - BACK DISORDER [None]
  - DRUG TOXICITY [None]
  - HEART RATE INCREASED [None]
  - MALIGNANT MELANOMA [None]
  - MIGRAINE [None]
  - MOVEMENT DISORDER [None]
  - PAIN [None]
  - PSYCHOTIC DISORDER [None]
  - THYROID CYST [None]
  - VERTIGO [None]
  - VOMITING [None]
